FAERS Safety Report 5073211-2 (Version None)
Quarter: 2006Q3

REPORT INFORMATION
  Report Type: 
  Country: None (occurrence: None)
  Receive Date: 20060710
  Receipt Date: 20060512
  Transmission Date: 20061208
  Serious: No
  Sender: FDA-Public Use
  Company Number: 2006US001096

PATIENT
  Sex: Male

DRUGS (2)
  1. MYCAMINE [Suspect]
     Indication: OESOPHAGEAL CANDIDIASIS
     Dosage: SEE IMAGE
     Route: 051
  2. AMBISOME [Suspect]
     Indication: OESOPHAGEAL CANDIDIASIS

REACTIONS (2)
  - RASH [None]
  - RENAL IMPAIRMENT [None]
